FAERS Safety Report 7176408-0 (Version None)
Quarter: 2010Q4

REPORT INFORMATION
  Report Type: 
  Country: None (occurrence: None)
  Receive Date: 20101220
  Receipt Date: 20101208
  Transmission Date: 20110411
  Serious: Yes (Hospitalization)
  Sender: FDA-Public Use
  Company Number: US-RANBAXY-2010US-40246

PATIENT
  Age: 42 Month
  Sex: Female

DRUGS (1)
  1. PHENOBARBITAL [Suspect]
     Indication: FEBRILE CONVULSION
     Dosage: UNK, UNK
     Route: 065

REACTIONS (2)
  - DRUG RASH WITH EOSINOPHILIA AND SYSTEMIC SYMPTOMS [None]
  - STEVENS-JOHNSON SYNDROME [None]
